FAERS Safety Report 9744465 (Version 2)
Quarter: 2013Q4

REPORT INFORMATION
  Report Type: Spontaneous
  Country: IT (occurrence: IT)
  Receive Date: 20131210
  Receipt Date: 20131210
  Transmission Date: 20140711
  Serious: Yes (Other)
  Sender: FDA-Public Use
  Company Number: IT-TEVA-447992ISR

PATIENT
  Age: 27 Year
  Sex: Male

DRUGS (6)
  1. CISPLATIN [Suspect]
     Indication: TESTIS CANCER
     Dosage: POWDER FOR SOLUTION FOR INJECTION
     Route: 042
     Dates: start: 20130801
  2. CISPLATIN [Suspect]
     Indication: ABDOMINAL LYMPHADENOPATHY
  3. ETOPOSIDE [Suspect]
     Indication: TESTIS CANCER
     Route: 042
     Dates: start: 20130801
  4. ETOPOSIDE [Suspect]
     Indication: ABDOMINAL LYMPHADENOPATHY
  5. BLEOMYCIN SULFATE [Suspect]
     Indication: TESTIS CANCER
     Route: 042
     Dates: start: 20130801
  6. BLEOMYCIN SULFATE [Suspect]
     Indication: ABDOMINAL LYMPHADENOPATHY

REACTIONS (3)
  - Neutropenia [Recovered/Resolved]
  - Thrombocytopenia [Recovered/Resolved]
  - Leukopenia [Unknown]
